FAERS Safety Report 4400813-6 (Version None)
Quarter: 2004Q3

REPORT INFORMATION
  Report Type: 
  Country: None (occurrence: None)
  Receive Date: 20040907
  Receipt Date: 20030620
  Transmission Date: 20050211
  Serious: No
  Sender: FDA-Public Use
  Company Number: US-BRISTOL-MYERS SQUIBB COMPANY-12307443

PATIENT
  Sex: Male

DRUGS (6)
  1. COUMADIN [Suspect]
     Dosage: DOSE VALUE: 5 MG FIVE TIMES WEEK, ALTERNATING WITH 2.5 MG TWICE WEEK. DURATION:  MANY YEARS.
     Route: 048
  2. AMIODARONE HCL [Concomitant]
  3. PRAVACHOL [Concomitant]
  4. LASIX [Concomitant]
  5. TOPROL-XL [Concomitant]
  6. CENTRUM [Concomitant]

REACTIONS (1)
  - INTERNATIONAL NORMALISED RATIO INCREASED [None]
